FAERS Safety Report 5409465-X (Version None)
Quarter: 2007Q3

REPORT INFORMATION
  Report Type: 
  Country: None (occurrence: None)
  Receive Date: 20070807
  Receipt Date: 20070807
  Transmission Date: 20080115
  Serious: Yes (Other)
  Sender: FDA-Public Use
  Company Number: None

PATIENT
  Age: 19 Year
  Sex: Female
  Weight: 70.7611 kg

DRUGS (1)
  1. CREST W/ FLUORIDE [Suspect]
     Indication: DENTAL CARE
     Dosage: 1 INCH  1 OR 2 DAILY  DENTAL
     Route: 004
     Dates: start: 20061101, end: 20070717

REACTIONS (3)
  - DENTAL CARIES [None]
  - TEETH BRITTLE [None]
  - TOOTH DISCOLOURATION [None]
